FAERS Safety Report 8741895 (Version 2)
Quarter: 2012Q4

REPORT INFORMATION
  Report Type: 
  Country: US (occurrence: US)
  Receive Date: 20120824
  Receipt Date: 20120829
  Transmission Date: 20130627
  Serious: Yes (Other)
  Sender: FDA-Public Use
  Company Number: US-PFIZER INC-2012203923

PATIENT
  Age: 69 Year
  Sex: Male

DRUGS (2)
  1. CHANTIX [Suspect]
     Indication: TOBACCO ABUSE
     Dosage: 0.5 mg, 2x/day
     Route: 048
     Dates: start: 20120813
  2. LIPITOR [Concomitant]
     Dosage: UNK

REACTIONS (3)
  - Anxiety [Unknown]
  - Agitation [Unknown]
  - Tension [Unknown]
